FAERS Safety Report 25825410 (Version 1)
Quarter: 2025Q3

REPORT INFORMATION
  Report Type: Spontaneous
  Country: EU (occurrence: EU)
  Receive Date: 20250919
  Receipt Date: 20250919
  Transmission Date: 20251020
  Serious: Yes (Hospitalization, Other)
  Sender: JOHNSON AND JOHNSON
  Company Number: EU-JNJFOC-20250919281

PATIENT
  Age: 69 Year
  Sex: Female

DRUGS (1)
  1. TALQUETAMAB [Suspect]
     Active Substance: TALQUETAMAB
     Indication: Plasma cell myeloma
     Route: 065
     Dates: start: 20250602

REACTIONS (6)
  - Temperature regulation disorder [Not Recovered/Not Resolved]
  - Cytokine release syndrome [Unknown]
  - Neutropenia [Unknown]
  - Anaemia [Unknown]
  - Dysgeusia [Unknown]
  - Dry mouth [Unknown]
